FAERS Safety Report 5528022-8 (Version None)
Quarter: 2007Q4

REPORT INFORMATION
  Report Type: 
  Country: None (occurrence: None)
  Receive Date: 20071113
  Receipt Date: 20061122
  Transmission Date: 20080405
  Serious: Yes (Hospitalization)
  Sender: FDA-Public Use
  Company Number: 2006-BP-13715BP

PATIENT
  Age: 65 Year
  Sex: Male

DRUGS (2)
  1. MICARDIS [Suspect]
     Indication: HYPERTENSION
     Dosage: (80 MG, 1/2 OF AN 80 MG TABLET BID),PO
     Route: 048
     Dates: start: 20060101
  2. REQUIP [Concomitant]

REACTIONS (4)
  - COLD SWEAT [None]
  - HYPOTENSION [None]
  - PALLOR [None]
  - SYNCOPE [None]
